FAERS Safety Report 8886874 (Version 1)
Quarter: 2012Q4

REPORT INFORMATION
  Report Type: 
  Country: US (occurrence: US)
  Receive Date: 20121105
  Receipt Date: 20121105
  Transmission Date: 20130627
  Serious: Yes (Hospitalization)
  Sender: FDA-Public Use
  Company Number: US-ASTRAZENECA-2012SE81941

PATIENT

DRUGS (3)
  1. SYMBICORT PMDI [Suspect]
     Indication: CHRONIC OBSTRUCTIVE PULMONARY DISEASE
     Dosage: MCG, UNKNOWN
     Route: 055
     Dates: end: 20121008
  2. FLOVENT [Suspect]
     Indication: CHRONIC OBSTRUCTIVE PULMONARY DISEASE
     Route: 055
  3. UNSPECIFIED DRUG [Suspect]
     Indication: CHRONIC OBSTRUCTIVE PULMONARY DISEASE
     Route: 065

REACTIONS (5)
  - Oesophageal candidiasis [Unknown]
  - Cough [Unknown]
  - Faeces discoloured [Unknown]
  - Nerve compression [Unknown]
  - Coeliac disease [Unknown]
